FAERS Safety Report 8139805-2 (Version None)
Quarter: 2012Q1

REPORT INFORMATION
  Report Type: 
  Country: None (occurrence: None)
  Receive Date: 20120215
  Receipt Date: 20120202
  Transmission Date: 20120608
  Serious: Yes (Hospitalization)
  Sender: FDA-Public Use
  Company Number: US-ELI_LILLY_AND_COMPANY-US201202002020

PATIENT
  Sex: Female

DRUGS (4)
  1. OTHER ANTIHYPERTENSIVES [Concomitant]
     Dosage: 1 D/F
  2. CYMBALTA [Suspect]
     Indication: DEPRESSION
     Dosage: 50 MG, QD
  3. BOTOX [Concomitant]
     Indication: DYSTONIA
     Dosage: 1 D/F
  4. CYMBALTA [Suspect]
     Dosage: 40 MG, QD

REACTIONS (3)
  - BLOOD PRESSURE INCREASED [None]
  - PYREXIA [None]
  - PALPITATIONS [None]
